FAERS Safety Report 4919829-6 (Version None)
Quarter: 2006Q1

REPORT INFORMATION
  Report Type: 
  Country: None (occurrence: None)
  Receive Date: 20060221
  Receipt Date: 20060221
  Transmission Date: 20060701
  Serious: Yes (Death, Hospitalization)
  Sender: FDA-Public Use
  Company Number: None

PATIENT
  Sex: Male
  Weight: 80 kg

DRUGS (2)
  1. CARBOPLATIN [Suspect]
     Indication: OVARIAN EPITHELIAL CANCER
     Dosage: 971 MG
     Dates: start: 20060103, end: 20060131
  2. TAXOL [Suspect]
     Dosage: 332.5 MG
     Dates: start: 20060103, end: 20060131

REACTIONS (6)
  - ASCITES [None]
  - DYSPNOEA [None]
  - FEBRILE NEUTROPENIA [None]
  - MALIGNANT NEOPLASM PROGRESSION [None]
  - MALIGNANT PLEURAL EFFUSION [None]
  - PLEURAL EFFUSION [None]
